FAERS Safety Report 19925045 (Version 1)
Quarter: 2021Q4

REPORT INFORMATION
  Report Type: Spontaneous
  Country: US (occurrence: US)
  Receive Date: 20211006
  Receipt Date: 20211006
  Transmission Date: 20220303
  Serious: Yes (Hospitalization)
  Sender: FDA-Public Use
  Company Number: US-OXFORD PHARMACEUTICALS, LLC-2120249

PATIENT
  Age: 19 Month
  Sex: Male

DRUGS (2)
  1. BUSPIRONE HYDROCHLORIDE [Suspect]
     Active Substance: BUSPIRONE HYDROCHLORIDE
     Indication: Product used for unknown indication
  2. CLONIDINE [Suspect]
     Active Substance: CLONIDINE

REACTIONS (3)
  - Gait disturbance [Recovered/Resolved]
  - Mental status changes [Recovered/Resolved]
  - Accidental exposure to product [Recovered/Resolved]
